FAERS Safety Report 5946006-2 (Version None)
Quarter: 2008Q4

REPORT INFORMATION
  Report Type: 
  Country: None (occurrence: None)
  Receive Date: 20081107
  Receipt Date: 20081107
  Transmission Date: 20090506
  Serious: Yes (Other)
  Sender: FDA-Public Use
  Company Number: None

PATIENT
  Sex: Male
  Weight: 84.8226 kg

DRUGS (2)
  1. DEPAKOTE [Suspect]
     Dosage: 250 MGS BID ORAL
     Route: 048
  2. DEPAKOTE [Suspect]
     Dosage: 500 MGS QID ORAL
     Route: 048

REACTIONS (3)
  - CONDITION AGGRAVATED [None]
  - CONVULSION [None]
  - NO THERAPEUTIC RESPONSE [None]
